FAERS Safety Report 20076339 (Version 1)
Quarter: 2021Q4

REPORT INFORMATION
  Report Type: Spontaneous
  Country: DE (occurrence: DE)
  Receive Date: 20211116
  Receipt Date: 20211116
  Transmission Date: 20220304
  Serious: Yes (Hospitalization)
  Sender: FDA-Public Use
  Company Number: DE-ADRED-06696-01

PATIENT
  Age: 85 Year
  Sex: Female

DRUGS (13)
  1. FINGOLIMOD [Suspect]
     Active Substance: FINGOLIMOD
     Indication: Product used for unknown indication
     Dosage: UNK
  2. NALOXONE HYDROCHLORIDE\TILIDINE HYDROCHLORIDE [Concomitant]
     Active Substance: NALOXONE HYDROCHLORIDE\TILIDINE HYDROCHLORIDE
     Dosage: 1 DOSAGE FORM, QD (8/100 MG, 1-0-0-0, KAPSELN)
     Route: 048
  3. BISOPROLOL [Concomitant]
     Active Substance: BISOPROLOL
     Dosage: 5 MILLIGRAM, QD (5 MG, 1-0-0-0, RETARD-TABLETTEN)
     Route: 048
  4. CLOPIDOGREL [Concomitant]
     Active Substance: CLOPIDOGREL BISULFATE
     Dosage: 75 MILLIGRAM, QD (75 MG, 0-1-0-0, TABLETTEN)
     Route: 048
  5. RISPERIDONE [Concomitant]
     Active Substance: RISPERIDONE
     Dosage: 1 MILLIGRAM, QD (0.5 MG, 1-0-1-0, DRAGEES)
     Route: 048
  6. NITRENDIPINE [Concomitant]
     Active Substance: NITRENDIPINE
     Dosage: 5 MILLIGRAM, PRN (5 MG/ML, BEI BEDARF, KAPSELN)
     Route: 048
  7. LEVETIRACETAM [Concomitant]
     Active Substance: LEVETIRACETAM
     Dosage: 1500 MILLIGRAM, QD (750 MG, 1-0-1-0, TABLETTEN)
     Route: 048
  8. CARBIMAZOLE [Concomitant]
     Active Substance: CARBIMAZOLE
     Dosage: 10 MILLIGRAM, QD (10 MG, 1-0-0-0, TABLETTEN)
     Route: 048
  9. TORSEMIDE [Concomitant]
     Active Substance: TORSEMIDE
     Dosage: 10 MILLIGRAM, QD (10 MG, 1-0-0-0, TABLETTEN)
     Route: 048
  10. CANDESARTAN [Concomitant]
     Active Substance: CANDESARTAN
     Dosage: 16 MILLIGRAM, QD (8 MG, 1-0-1-0, TABLETTEN)
     Route: 048
  11. PANTOPRAZOLE [Concomitant]
     Active Substance: PANTOPRAZOLE
     Dosage: 20 MILLIGRAM, QD (20 MG, 1-0-0-0, TABLETTEN)
     Route: 048
  12. LERCANIDIPINE                      /01366402/ [Concomitant]
     Dosage: 5 MILLIGRAM, QD (5 MG, 0-0-1-0, TABLETTEN)
     Route: 048
  13. ASPIRIN [Concomitant]
     Active Substance: ASPIRIN
     Dosage: 100 MILLIGRAM, QD (100 MG, 0-1-0-0, TABLETTEN)
     Route: 048

REACTIONS (5)
  - Dysuria [Unknown]
  - Haematuria [Unknown]
  - Urinary tract infection [Unknown]
  - Lymphopenia [Unknown]
  - Pyrexia [Unknown]
